FAERS Safety Report 18586535 (Version 2)
Quarter: 2025Q3

REPORT INFORMATION
  Report Type: Report from Study
  Country: US (occurrence: None)
  Receive Date: 20201207
  Receipt Date: 20250717
  Transmission Date: 20251020
  Serious: No
  Sender: INCYTE
  Company Number: US-INCYTE CORPORATION-2020IN011392

PATIENT
  Age: 69 Year
  Weight: 116.19 kg

DRUGS (3)
  1. JAKAFI [Suspect]
     Active Substance: RUXOLITINIB
     Indication: Myelofibrosis
     Dosage: 15 MILLIGRAM, BID
  2. JAKAFI [Suspect]
     Active Substance: RUXOLITINIB
     Dosage: 15 MILLIGRAM, BID
  3. LEVOTHYROXINE [Concomitant]
     Active Substance: LEVOTHYROXINE
     Indication: Product used for unknown indication
     Route: 065

REACTIONS (6)
  - Ankle deformity [Recovered/Resolved]
  - Energy increased [Unknown]
  - Increased appetite [Unknown]
  - General physical health deterioration [Unknown]
  - Decreased activity [Unknown]
  - Therapeutic response unexpected [Unknown]
